FAERS Safety Report 6044072-X (Version None)
Quarter: 2009Q1

REPORT INFORMATION
  Report Type: 
  Country: None (occurrence: None)
  Receive Date: 20090120
  Receipt Date: 20090116
  Transmission Date: 20090719
  Serious: Yes (Other)
  Sender: FDA-Public Use
  Company Number: A0764008A

PATIENT
  Age: 42 Year
  Sex: Female

DRUGS (8)
  1. LAMOTRIGINE [Suspect]
     Indication: EPILEPSY
     Dosage: 25MG PER DAY
     Route: 048
     Dates: start: 20081014
  2. TYLENOL W/ CODEINE [Suspect]
  3. BICILLIN [Concomitant]
     Indication: EXPOSURE TO COMMUNICABLE DISEASE
  4. HALDOL [Concomitant]
  5. ZOLOFT [Concomitant]
  6. INVEGA [Concomitant]
  7. VITAMIN AND MINERAL PRENATAL SUPPLEMENT W/ FOLIC ACID CAP [Concomitant]
  8. FOLATE [Concomitant]

REACTIONS (5)
  - ANXIETY [None]
  - CONVULSION [None]
  - DRUG ABUSE [None]
  - DRUG EXPOSURE DURING PREGNANCY [None]
  - INSOMNIA [None]
